FAERS Safety Report 25807629 (Version 1)
Quarter: 2025Q3

REPORT INFORMATION
  Report Type: Spontaneous
  Country: CN (occurrence: CN)
  Receive Date: 20250916
  Receipt Date: 20250916
  Transmission Date: 20251020
  Serious: Yes (Other)
  Sender: OTSUKA
  Company Number: CN-MMM-Otsuka-82VM1BWG

PATIENT
  Age: 86 Year
  Sex: Male

DRUGS (2)
  1. TOLVAPTAN [Suspect]
     Active Substance: TOLVAPTAN
     Indication: Cardiac failure
     Dosage: 15 MG, QD
     Route: 048
     Dates: start: 20250827, end: 20250909
  2. TOLVAPTAN [Suspect]
     Active Substance: TOLVAPTAN
     Indication: Asthenia

REACTIONS (1)
  - Hepatic function abnormal [Recovering/Resolving]

NARRATIVE: CASE EVENT DATE: 20250908
